FAERS Safety Report 4328083-8 (Version None)
Quarter: 2004Q1

REPORT INFORMATION
  Report Type: 
  Country: None (occurrence: None)
  Receive Date: 20040331
  Receipt Date: 20030711
  Transmission Date: 20041129
  Serious: Yes (Life-Threatening, Hospitalization, Disabling)
  Sender: FDA-Public Use
  Company Number: DE-ROCHE-342187

PATIENT
  Age: 69 Year
  Sex: Male
  Weight: 68.9 kg

DRUGS (71)
  1. DACLIZUMAB [Suspect]
     Route: 042
     Dates: start: 20030709, end: 20030709
  2. DACLIZUMAB [Suspect]
     Route: 042
     Dates: end: 20030903
  3. MYCOPHENOLATE MOFETIL [Suspect]
     Route: 048
     Dates: start: 20030709, end: 20030715
  4. MYCOPHENOLATE MOFETIL [Suspect]
     Route: 048
     Dates: start: 20030716, end: 20030718
  5. MYCOPHENOLATE MOFETIL [Suspect]
     Route: 048
     Dates: start: 20030719, end: 20030730
  6. MYCOPHENOLATE MOFETIL [Suspect]
     Route: 048
     Dates: start: 20030731, end: 20030731
  7. MYCOPHENOLATE MOFETIL [Suspect]
     Route: 048
     Dates: start: 20030807, end: 20030807
  8. MYCOPHENOLATE MOFETIL [Suspect]
     Route: 048
     Dates: start: 20030808, end: 20030822
  9. MYCOPHENOLATE MOFETIL [Suspect]
     Route: 048
     Dates: start: 20030823, end: 20030824
  10. MYCOPHENOLATE MOFETIL [Suspect]
     Route: 048
     Dates: start: 20030825, end: 20030901
  11. MYCOPHENOLATE MOFETIL [Suspect]
     Route: 048
     Dates: end: 20031114
  12. MYCOPHENOLATE MOFETIL [Suspect]
     Route: 048
     Dates: end: 20040325
  13. SIROLIMUS [Suspect]
     Route: 048
     Dates: start: 20030709, end: 20030711
  14. SIROLIMUS [Suspect]
     Route: 048
     Dates: start: 20030712, end: 20030717
  15. SIROLIMUS [Suspect]
     Route: 048
     Dates: start: 20030718, end: 20030725
  16. SIROLIMUS [Suspect]
     Route: 048
     Dates: start: 20030726, end: 20030731
  17. SIROLIMUS [Suspect]
     Route: 048
     Dates: start: 20030804, end: 20030804
  18. SIROLIMUS [Suspect]
     Route: 048
     Dates: start: 20030808, end: 20030808
  19. SIROLIMUS [Suspect]
     Route: 048
     Dates: start: 20030810, end: 20030813
  20. SIROLIMUS [Suspect]
     Route: 048
     Dates: start: 20030815, end: 20030816
  21. SIROLIMUS [Suspect]
     Route: 048
     Dates: start: 20030818
  22. SIROLIMUS [Suspect]
     Route: 048
  23. SOLU-DECORTIN H [Suspect]
     Route: 042
     Dates: start: 20030709, end: 20030709
  24. SOLU-DECORTIN H [Suspect]
     Route: 042
     Dates: start: 20030710, end: 20030710
  25. DECORTIN [Suspect]
     Route: 048
     Dates: start: 20030710, end: 20030710
  26. DECORTIN [Suspect]
     Route: 048
     Dates: start: 20030711, end: 20030712
  27. DECORTIN [Suspect]
     Route: 048
     Dates: start: 20030713, end: 20030714
  28. DECORTIN [Suspect]
     Route: 048
     Dates: start: 20030715, end: 20030716
  29. DECORTIN [Suspect]
     Route: 048
     Dates: start: 20030717, end: 20030723
  30. DECORTIN [Suspect]
     Route: 048
     Dates: start: 20030724, end: 20030730
  31. DECORTIN [Suspect]
     Route: 048
     Dates: start: 20030731, end: 20030818
  32. DECORTIN [Suspect]
     Route: 048
     Dates: start: 20030819, end: 20030820
  33. DECORTIN [Suspect]
     Route: 048
     Dates: start: 20030821, end: 20030823
  34. DECORTIN [Suspect]
     Route: 048
     Dates: start: 20030824, end: 20030826
  35. DECORTIN [Suspect]
     Route: 048
     Dates: start: 20030827, end: 20030829
  36. DECORTIN [Suspect]
     Route: 048
     Dates: start: 20030830, end: 20030905
  37. DECORTIN [Suspect]
     Route: 048
     Dates: start: 20030906
  38. DECORTIN [Suspect]
     Route: 048
     Dates: start: 20031028
  39. ASS [Suspect]
     Route: 048
     Dates: end: 20030715
  40. PLAVIX [Suspect]
     Route: 065
     Dates: end: 20030715
  41. RESPERIDON [Concomitant]
     Route: 042
  42. MAGNESIOCARD [Concomitant]
     Route: 042
  43. AMPICILLIN SODIUM/SULBACTAM SODIUM [Concomitant]
     Route: 048
     Dates: start: 20030709
  44. KEPINOL [Concomitant]
     Route: 048
     Dates: start: 20030709
  45. NORVASC [Concomitant]
     Route: 048
     Dates: start: 20030709
  46. AMPHO-MORONAL [Concomitant]
     Dosage: DOSE: 1 PIPETTE.
     Route: 048
  47. DILATREND [Concomitant]
     Route: 048
     Dates: start: 20030709
  48. PRAVASIN [Concomitant]
     Route: 048
     Dates: start: 20030709
  49. CLORAZEPATE DIPOTASSIUM [Concomitant]
     Route: 048
  50. BIFITERAL [Concomitant]
     Route: 048
     Dates: end: 20031113
  51. MAALOXAN [Concomitant]
     Dates: start: 20030715, end: 20030715
  52. CORDAREX [Concomitant]
     Route: 048
  53. PERLINGANIT [Concomitant]
     Dates: end: 20030715
  54. EBRANTIL [Concomitant]
  55. HEPARIN [Concomitant]
     Route: 058
     Dates: end: 20030715
  56. ACTRAPHANE [Concomitant]
  57. CORVATON [Concomitant]
     Route: 048
  58. ISOKET RETARD [Concomitant]
     Route: 048
  59. SPASMEX [Concomitant]
     Route: 048
     Dates: end: 20030805
  60. ACC [Concomitant]
     Route: 048
  61. SALVIATHYMOL [Concomitant]
  62. RANITIDINE [Concomitant]
     Route: 042
     Dates: end: 20030806
  63. EPO [Concomitant]
  64. ACTONEL [Concomitant]
     Route: 048
     Dates: end: 20031113
  65. ROCALTROL [Concomitant]
     Route: 048
  66. PANTOZOL [Concomitant]
     Route: 048
  67. CIPROBAY [Concomitant]
     Route: 048
     Dates: end: 20031114
  68. ALNA [Concomitant]
     Route: 048
  69. ARANESP [Concomitant]
  70. FERROUS SULFATE TAB [Concomitant]
     Dates: end: 20031113
  71. ACTRAPID [Concomitant]
     Dosage: DOSING AMOUNT 41 E.

REACTIONS (16)
  - ABDOMINAL HERNIA [None]
  - ACUTE ABDOMEN [None]
  - ACUTE CORONARY SYNDROME [None]
  - BACTERIAL INFECTION [None]
  - FUNGAL INFECTION [None]
  - GASTROINTESTINAL HAEMORRHAGE [None]
  - INFECTION [None]
  - INTESTINAL PROLAPSE [None]
  - LARYNGITIS [None]
  - LUNG INFILTRATION [None]
  - LYMPHOCELE [None]
  - MUCOUS MEMBRANE DISORDER [None]
  - MYOCARDIAL INFARCTION [None]
  - OESOPHAGEAL CANDIDIASIS [None]
  - PNEUMONIA [None]
  - SUTURE RUPTURE [None]
